FAERS Safety Report 4712847-2 (Version None)
Quarter: 2005Q3

REPORT INFORMATION
  Report Type: 
  Country: None (occurrence: None)
  Receive Date: 20050711
  Receipt Date: 20050620
  Transmission Date: 20060218
  Serious: Yes (Hospitalization)
  Sender: FDA-Public Use
  Company Number: 213250

PATIENT
  Age: 61 Year
  Sex: Male
  Weight: 60 kg

DRUGS (10)
  1. MABTHERA (RITUXIMAB) CONC FOR SOLUTION FOR INFUSION [Suspect]
     Indication: NON-HODGKIN'S LYMPHOMA RECURRENT
     Dosage: 700 MG, INTRAVENOUS
     Route: 042
     Dates: start: 20010116, end: 20010508
  2. CYCLOPHOSPHAMIDE [Suspect]
     Indication: NON-HODGKIN'S LYMPHOMA RECURRENT
     Dosage: 1120 MG, INTRAVENOUS
     Route: 042
     Dates: start: 20010116, end: 20010508
  3. DOXORUBICIN HYDROCHLORIDE [Suspect]
     Indication: NON-HODGKIN'S LYMPHOMA RECURRENT
     Dosage: 75 MG, INTRAVENOUS
     Route: 042
     Dates: start: 20010116, end: 20010508
  4. VINCRISTINE [Suspect]
     Indication: NON-HODGKIN'S LYMPHOMA RECURRENT
     Dosage: 2 MG, INTRAVENOUS
     Route: 042
     Dates: start: 20010116, end: 20010805
  5. PREDNISONE [Suspect]
     Indication: NON-HODGKIN'S LYMPHOMA RECURRENT
     Dosage: 500 MG
     Dates: start: 20010116, end: 20010502
  6. ZANTAC [Concomitant]
  7. ALLOPURINOL [Concomitant]
  8. MAXOLON [Concomitant]
  9. RULIDE (ROXITHROMYCIN) [Concomitant]
  10. AMOXIL [Concomitant]

REACTIONS (5)
  - CHILLS [None]
  - FEBRILE NEUTROPENIA [None]
  - HAEMOGLOBIN DECREASED [None]
  - WHITE BLOOD CELL COUNT DECREASED [None]
  - WHITE BLOOD CELL COUNT INCREASED [None]
